FAERS Safety Report 14359652 (Version 1)
Quarter: 2018Q1

REPORT INFORMATION
  Report Type: Spontaneous
  Country: US (occurrence: US)
  Receive Date: 20180105
  Receipt Date: 20180105
  Transmission Date: 20180509
  Serious: No
  Sender: FDA-Public Use
  Company Number: -SAAVPROD-BI2017BI005534

PATIENT
  Age: 75 Year
  Sex: Female

DRUGS (4)
  1. RANITIDINE HYDROCHLORIDE. [Suspect]
     Active Substance: RANITIDINE HYDROCHLORIDE
     Indication: DYSPEPSIA
     Dosage: 1 TAB DAILY AS NEEDED;  FORM STRENGTH: 150 MG; FORMULATION: TABLET? ADMINISTRATION CORRECT? YES ?ACT
     Route: 048
     Dates: start: 20170124
  2. FLUTICASONE. [Concomitant]
     Active Substance: FLUTICASONE
     Indication: LUNG DISORDER
     Dosage: 1 SPRAY/NOSTRIL BID;  FORMULATION: NASAL SPRAY;
     Route: 045
  3. GUAIFENESIN. [Concomitant]
     Active Substance: GUAIFENESIN
     Indication: LUNG DISORDER
     Dosage: 1 TAB DAILY;  FORM STRENGTH: 600MG; FORMULATION: TABLET
     Route: 048
  4. ESTRADIOL/NORETHINDRONE ACETATE [Concomitant]
     Indication: GENITAL DISORDER FEMALE
     Dosage: 1 TAB DAILY;  FORM STRENGTH: 1MG/0.5 MG; FORMULATION: TABLET
     Route: 048

REACTIONS (4)
  - Eructation [Unknown]
  - Headache [Recovered/Resolved]
  - Flatulence [Unknown]
  - Constipation [Unknown]

NARRATIVE: CASE EVENT DATE: 20170125
